FAERS Safety Report 19765815 (Version 7)
Quarter: 2022Q2

REPORT INFORMATION
  Report Type: Report from Study
  Country: US (occurrence: US)
  Receive Date: 20210831
  Receipt Date: 20220419
  Transmission Date: 20220720
  Serious: Yes (Other)
  Sender: FDA-Public Use
  Company Number: NVSC2021US196492

PATIENT
  Age: 62 Year
  Sex: Female

DRUGS (1)
  1. ENTRESTO [Suspect]
     Active Substance: SACUBITRIL\VALSARTAN
     Indication: Product used for unknown indication
     Dosage: 200 MG (97/103MG), BID
     Route: 048
     Dates: start: 202103

REACTIONS (8)
  - Ejection fraction decreased [Unknown]
  - Diabetes mellitus [Unknown]
  - Fluid retention [Unknown]
  - Oedema peripheral [Unknown]
  - Abdominal pain upper [Not Recovered/Not Resolved]
  - Sinus disorder [Recovering/Resolving]
  - Nasopharyngitis [Recovering/Resolving]
  - Drug ineffective [Not Recovered/Not Resolved]

NARRATIVE: CASE EVENT DATE: 20210601
